FAERS Safety Report 6107768-7 (Version None)
Quarter: 2009Q1

REPORT INFORMATION
  Report Type: 
  Country: None (occurrence: None)
  Receive Date: 20090309
  Receipt Date: 20090303
  Transmission Date: 20090719
  Serious: Yes (Other)
  Sender: FDA-Public Use
  Company Number: B0556118A

PATIENT
  Age: 12 Year
  Sex: Male
  Weight: 36 kg

DRUGS (7)
  1. RELENZA [Suspect]
     Indication: INFLUENZA
     Dosage: 10MG TWICE PER DAY
     Route: 055
     Dates: start: 20081212
  2. CLARITIN [Concomitant]
     Route: 048
     Dates: start: 20081212, end: 20081217
  3. ACETAMINOPHEN [Concomitant]
     Dosage: 240MG AS REQUIRED
     Route: 065
     Dates: start: 20081211
  4. FLOMOX [Concomitant]
     Route: 048
     Dates: start: 20081211
  5. PERIACTIN [Concomitant]
     Route: 048
     Dates: start: 20081211
  6. MEDICON [Concomitant]
     Route: 048
     Dates: start: 20081211
  7. MUCOSOLVAN [Concomitant]
     Route: 048
     Dates: start: 20081211

REACTIONS (4)
  - ABNORMAL BEHAVIOUR [None]
  - BODY TEMPERATURE INCREASED [None]
  - DELIRIUM [None]
  - HALLUCINATION, VISUAL [None]
